FAERS Safety Report 7827454-2 (Version None)
Quarter: 2011Q4

REPORT INFORMATION
  Report Type: 
  Country: None (occurrence: None)
  Receive Date: 20111020
  Receipt Date: 20111004
  Transmission Date: 20120403
  Serious: Yes (Other)
  Sender: FDA-Public Use
  Company Number: AR-ROCHE-GNE323342

PATIENT
  Sex: Female

DRUGS (2)
  1. LUCENTIS [Suspect]
     Indication: MACULOPATHY
     Dosage: 1 DF, UNKNOWN
     Route: 050
     Dates: start: 20100825
  2. LUCENTIS [Suspect]

REACTIONS (2)
  - MACULOPATHY [None]
  - RETINAL DETACHMENT [None]
